FAERS Safety Report 10504245 (Version 1)
Quarter: 2014Q4

REPORT INFORMATION
  Report Type: Spontaneous
  Country: US (occurrence: None)
  Receive Date: 20141007
  Receipt Date: 20141007
  Transmission Date: 20150528
  Serious: Yes (Disabling)
  Sender: FDA-Public Use
  Company Number: None

PATIENT
  Age: 49 Year
  Sex: Female
  Weight: 68.04 kg

DRUGS (1)
  1. LEVOFLOXACIN 500 MG MACLEODS PHARMA [Suspect]
     Active Substance: LEVOFLOXACIN
     Indication: PNEUMONIA
     Dosage: 1 PILL ONCE DAILY
     Route: 048
     Dates: start: 20140916, end: 20140921

REACTIONS (11)
  - Joint swelling [None]
  - Burning sensation [None]
  - Hypoaesthesia [None]
  - Pain [None]
  - Joint stiffness [None]
  - Asthenia [None]
  - Tendonitis [None]
  - Arthralgia [None]
  - Mobility decreased [None]
  - Arthropathy [None]
  - Myalgia [None]

NARRATIVE: CASE EVENT DATE: 20140916
